FAERS Safety Report 14627900 (Version 1)
Quarter: 2018Q1

REPORT INFORMATION
  Report Type: Spontaneous
  Country: CZ (occurrence: CZ)
  Receive Date: 20180312
  Receipt Date: 20180312
  Transmission Date: 20180509
  Serious: Yes (Other)
  Sender: FDA-Public Use
  Company Number: CZ-BAUSCH-BL-2018-006367

PATIENT
  Age: 41 Year
  Sex: Female

DRUGS (2)
  1. LOCOID [Suspect]
     Active Substance: HYDROCORTISONE BUTYRATE
     Indication: DRY SKIN
     Route: 065
  2. LOCOID [Suspect]
     Active Substance: HYDROCORTISONE BUTYRATE
     Route: 065

REACTIONS (3)
  - Oral mucosal erythema [Unknown]
  - Rash [Unknown]
  - Scar [Unknown]
